FAERS Safety Report 12443759 (Version 1)
Quarter: 2016Q2

REPORT INFORMATION
  Report Type: Spontaneous
  Country: ZA (occurrence: ZA)
  Receive Date: 20160607
  Receipt Date: 20160607
  Transmission Date: 20160815
  Serious: Yes (Death)
  Sender: FDA-Public Use
  Company Number: ZA-MYLANLABS-2016M1022851

PATIENT

DRUGS (9)
  1. PLAGROL [Concomitant]
     Indication: ANTIPLATELET THERAPY
     Dosage: 75 MG, UNK
  2. FUROSEMIDE. [Concomitant]
     Active Substance: FUROSEMIDE
     Indication: DEPRESSION
     Dosage: 40 UNK, UNK
  3. SIMVASTATIN. [Concomitant]
     Active Substance: SIMVASTATIN
     Indication: BLOOD CHOLESTEROL
     Dosage: 20 MG, UNK
  4. SPIRACTIN                          /00006201/ [Concomitant]
     Indication: HYPERTENSION
     Dosage: 25 MG, UNK
  5. FUROSEMIDE MYLAN [Suspect]
     Active Substance: FUROSEMIDE
     Indication: DIURETIC THERAPY
     Dosage: 40 MG, QD
  6. CITALOPRAM [Concomitant]
     Active Substance: CITALOPRAM HYDROBROMIDE
     Indication: ANXIETY
     Dosage: 20 MG, UNK
  7. PURATA [Concomitant]
     Indication: DEPRESSION
     Dosage: 30 MG, UNK
  8. LANOXIN [Concomitant]
     Active Substance: DIGOXIN
     Indication: CARDIAC FAILURE
     Dosage: 0.25 MG, UNK
  9. DEGRANOL [Concomitant]
     Indication: EPILEPSY
     Dosage: 200 MG, UNK

REACTIONS (1)
  - Death [Fatal]
